FAERS Safety Report 5226252-6 (Version None)
Quarter: 2007Q1

REPORT INFORMATION
  Report Type: 
  Country: None (occurrence: None)
  Receive Date: 20070201
  Receipt Date: 20070124
  Transmission Date: 20070707
  Serious: Yes (Disabling)
  Sender: FDA-Public Use
  Company Number: 2006UW27075

PATIENT
  Age: 23795 Day
  Sex: Male

DRUGS (12)
  1. CRESTOR [Suspect]
     Indication: BLOOD CHOLESTEROL INCREASED
     Route: 048
     Dates: start: 20050201, end: 20061015
  2. LITHIUM CARBONATE [Concomitant]
     Indication: DEPRESSION
     Route: 048
     Dates: start: 20050815
  3. LAMICTAL [Concomitant]
     Indication: DEPRESSION
     Route: 048
     Dates: start: 20050815
  4. CAPTOPRIL [Concomitant]
     Indication: BLOOD PRESSURE INCREASED
     Route: 048
     Dates: start: 20040401
  5. MAXZIDE [Concomitant]
     Indication: BLOOD PRESSURE INCREASED
     Dosage: 37.5/25
     Route: 048
     Dates: start: 20040401
  6. AMBIEN [Concomitant]
     Indication: INSOMNIA
     Route: 048
     Dates: start: 20030401
  7. INDOCIN [Concomitant]
  8. ASPIRIN [Concomitant]
  9. ANDROID [Concomitant]
  10. NAPROSYN [Concomitant]
  11. THIAMINE HCL [Concomitant]
     Dates: start: 19920411
  12. GLASGOW [Concomitant]

REACTIONS (1)
  - AMNESIA [None]
